FAERS Safety Report 23142824 (Version 1)
Quarter: 2023Q4

REPORT INFORMATION
  Report Type: Spontaneous
  Country: US (occurrence: None)
  Receive Date: 20231102
  Receipt Date: 20231102
  Transmission Date: 20240110
  Serious: Yes (Hospitalization)
  Sender: FDA-Public Use
  Company Number: None

PATIENT
  Age: 18 Year
  Sex: Female
  Weight: 70 kg

DRUGS (6)
  1. WEGOVY [Suspect]
     Active Substance: SEMAGLUTIDE
     Indication: Weight decreased
     Dosage: OTHER FREQUENCY : WEEKLY;?
     Route: 058
     Dates: start: 20230403, end: 20231101
  2. Wegovy (semaglutide) 0.25mg/0.5mL [Concomitant]
     Dates: start: 20230403, end: 20230426
  3. Wegovy (semaglutide) 0.5mg/0.5mL [Concomitant]
     Dates: start: 20230426, end: 20230524
  4. Wegovy (semaglutide) 1mg/0.5mL [Concomitant]
     Dates: start: 20230602, end: 20230713
  5. Wegovy (semaglutide) 1.7mg/0.5mL [Concomitant]
     Dates: start: 20230713, end: 20230908
  6. Wegovy (semaglutide) 2.4mg/0.5mL [Concomitant]
     Dates: start: 20230908, end: 20231101

REACTIONS (1)
  - Pancreatitis acute [None]

NARRATIVE: CASE EVENT DATE: 20231101
